FAERS Safety Report 6339045-3 (Version None)
Quarter: 2009Q3

REPORT INFORMATION
  Report Type: 
  Country: None (occurrence: None)
  Receive Date: 20090903
  Receipt Date: 20090826
  Transmission Date: 20100115
  Serious: Yes (Death, Hospitalization)
  Sender: FDA-Public Use
  Company Number: BR-ROCHE-648852

PATIENT
  Age: 63 Year
  Sex: Female
  Weight: 63 kg

DRUGS (3)
  1. XELODA [Suspect]
     Indication: HEPATIC NEOPLASM MALIGNANT
     Dosage: DOSE: 7 TABLETS OF 500 MG DAILY
     Route: 065
     Dates: start: 20090709, end: 20090722
  2. VASOPRIL PLUS [Concomitant]
     Indication: BLOOD PRESSURE
     Dosage: FREQUENCY: DAILY
  3. PURAN T4 [Concomitant]
     Dosage: FREQUENCY: DAILY; INDICATION: THYROID (WHICH WAS REMOVED ON UNSPECIFIED DATE)

REACTIONS (5)
  - DIARRHOEA [None]
  - MALIGNANT NEOPLASM PROGRESSION [None]
  - MUCOSAL INFLAMMATION [None]
  - NAUSEA [None]
  - WOUND [None]
